FAERS Safety Report 13113161 (Version 2)
Quarter: 2017Q1

REPORT INFORMATION
  Report Type: Spontaneous
  Country: TH (occurrence: TH)
  Receive Date: 20170113
  Receipt Date: 20170125
  Transmission Date: 20170428
  Serious: Yes (Death, Hospitalization, Other)
  Sender: FDA-Public Use
  Company Number: TH-ASTELLAS-2016US050935

PATIENT
  Age: 65 Year
  Sex: Male

DRUGS (2)
  1. XTANDI [Suspect]
     Active Substance: ENZALUTAMIDE
     Indication: HORMONE-REFRACTORY PROSTATE CANCER
     Route: 050
     Dates: start: 20161226
  2. XTANDI [Suspect]
     Active Substance: ENZALUTAMIDE
     Route: 065

REACTIONS (5)
  - Thrombocytopenia [Unknown]
  - Pulmonary haemorrhage [Unknown]
  - Seizure [Unknown]
  - Intentional product misuse [Unknown]
  - Pneumonia [Fatal]

NARRATIVE: CASE EVENT DATE: 20161226
